FAERS Safety Report 20228512 (Version 2)
Quarter: 2022Q1

REPORT INFORMATION
  Report Type: Report from Study
  Country: US (occurrence: US)
  Receive Date: 20211225
  Receipt Date: 20220224
  Transmission Date: 20220423
  Serious: Yes (Other)
  Sender: FDA-Public Use
  Company Number: US-SANOFI-00332263

PATIENT
  Age: 62 Year
  Sex: Female

DRUGS (5)
  1. TERIFLUNOMIDE [Suspect]
     Active Substance: TERIFLUNOMIDE
     Indication: Multiple sclerosis
     Dosage: 14 MG, QD
     Route: 048
     Dates: start: 20200501
  2. TERIFLUNOMIDE [Suspect]
     Active Substance: TERIFLUNOMIDE
     Dosage: 14 MG, HS
     Route: 048
     Dates: start: 202008
  3. COLLAGEN [Concomitant]
     Active Substance: COLLAGEN
  4. NURTEC ODT [Concomitant]
     Active Substance: RIMEGEPANT SULFATE
     Dosage: UNK
  5. PROPRANOLOL [Concomitant]
     Active Substance: PROPRANOLOL HYDROCHLORIDE
     Dosage: UNK

REACTIONS (14)
  - Paralysis [Unknown]
  - Asthenia [Not Recovered/Not Resolved]
  - Vision blurred [Recovering/Resolving]
  - Sleep disorder [Unknown]
  - Tremor [Unknown]
  - Muscular weakness [Unknown]
  - Eyelid ptosis [Unknown]
  - Visual field defect [Unknown]
  - Visual acuity reduced [Unknown]
  - Spinal operation [Unknown]
  - Migraine [Unknown]
  - Ill-defined disorder [Unknown]
  - Hypertension [Not Recovered/Not Resolved]
  - Blood pressure increased [Recovered/Resolved]
